FAERS Safety Report 24324207 (Version 1)
Quarter: 2024Q3

REPORT INFORMATION
  Report Type: Spontaneous
  Country: FR (occurrence: FR)
  Receive Date: 20240916
  Receipt Date: 20240916
  Transmission Date: 20241016
  Serious: Yes (Hospitalization)
  Sender: BAXTER
  Company Number: None

PATIENT
  Age: 54 Year
  Sex: Female
  Weight: 89 kg

DRUGS (4)
  1. PROPOFOL [Suspect]
     Active Substance: PROPOFOL
     Indication: Anaesthesia
     Dosage: 1 IN TOTAL
     Route: 041
     Dates: start: 20240807, end: 20240807
  2. KARDEGIC [Suspect]
     Active Substance: ASPIRIN DL-LYSINE
     Indication: Intracranial aneurysm
     Dosage: 75 MG 1 DAY, POWDER FOR ORAL SOLUTION IN SACHET-DOSE (DOSAGE TEXT : 75 MG/DAY)
     Route: 048
     Dates: start: 20240731
  3. HEPARIN [Suspect]
     Active Substance: HEPARIN SODIUM
     Indication: Anaesthesia
     Dosage: 4500 IU 1 IN TOTAL (DOSAGE TEXT : 4500 IU IN IVD)
     Route: 041
     Dates: start: 20240807, end: 20240807
  4. TICAGRELOR [Suspect]
     Active Substance: TICAGRELOR
     Indication: Intracranial aneurysm
     Dosage: 90 MG FOR 12 HRS, ORODISPERSIBLE TABLET (DOSAGE TEXT : 90 MG EVERY 12 HOURS)
     Route: 048
     Dates: start: 20240806

REACTIONS (1)
  - Haemoptysis [Recovering/Resolving]

NARRATIVE: CASE EVENT DATE: 20240808
